FAERS Safety Report 16717208 (Version 1)
Quarter: 2019Q3

REPORT INFORMATION
  Report Type: Spontaneous
  Country: US (occurrence: US)
  Receive Date: 20190819
  Receipt Date: 20190819
  Transmission Date: 20191005
  Serious: No
  Sender: FDA-Public Use
  Company Number: US-PFIZER INC-2019351802

PATIENT
  Age: 77 Year
  Sex: Female

DRUGS (1)
  1. QUIBRON (GUAIFENESIN\THEOPHYLLINE) [Suspect]
     Active Substance: GUAIFENESIN\THEOPHYLLINE
     Dosage: UNK
     Route: 048

REACTIONS (2)
  - Nausea [Unknown]
  - Drug hypersensitivity [Unknown]
